FAERS Safety Report 5234111-8 (Version None)
Quarter: 2007Q1

REPORT INFORMATION
  Report Type: 
  Country: None (occurrence: None)
  Receive Date: 20070208
  Receipt Date: 20070131
  Transmission Date: 20070707
  Serious: Yes (Other)
  Sender: FDA-Public Use
  Company Number: GB-PFIZER INC-2007008870

PATIENT
  Age: 40 Year
  Sex: Female

DRUGS (2)
  1. XALATAN [Suspect]
     Route: 047
  2. PILOCARPINE [Concomitant]

REACTIONS (1)
  - HEART RATE INCREASED [None]
